FAERS Safety Report 9423061 (Version 2)
Quarter: 2013Q3

REPORT INFORMATION
  Report Type: Report from Study
  Country: KR (occurrence: KR)
  Receive Date: 20130726
  Receipt Date: 20130809
  Transmission Date: 20140515
  Serious: Yes (Other)
  Sender: FDA-Public Use
  Company Number: KR-GLAXOSMITHKLINE-B0907318A

PATIENT
  Age: 51 Year
  Sex: Female
  Weight: 50.1 kg

DRUGS (2)
  1. LAPATINIB [Suspect]
     Indication: BREAST CANCER
     Dosage: 1500MG PER DAY
     Route: 048
     Dates: start: 20130626, end: 20130701
  2. LETROZOLE [Suspect]
     Indication: BREAST CANCER
     Dosage: 25MG PER DAY
     Route: 048
     Dates: start: 20130619, end: 20130701

REACTIONS (6)
  - Aspartate aminotransferase increased [Recovered/Resolved]
  - Alanine aminotransferase increased [Recovered/Resolved]
  - Aspartate aminotransferase increased [Recovered/Resolved]
  - Alanine aminotransferase increased [Recovered/Resolved]
  - Blood bilirubin increased [Recovered/Resolved]
  - Fatigue [Recovered/Resolved]
